FAERS Safety Report 6925064-2 (Version None)
Quarter: 2010Q3

REPORT INFORMATION
  Report Type: 
  Country: None (occurrence: None)
  Receive Date: 20100810
  Receipt Date: 20100727
  Transmission Date: 20110219
  Serious: Yes (Other)
  Sender: FDA-Public Use
  Company Number: ACO_01249_2010

PATIENT
  Sex: Female
  Weight: 55.7924 kg

DRUGS (1)
  1. AMPYRA [Suspect]
     Indication: GAIT DISTURBANCE
     Dosage: 10 MG BID ORAL
     Route: 048
     Dates: start: 20100525

REACTIONS (9)
  - BACK PAIN [None]
  - BALANCE DISORDER [None]
  - CONDITION AGGRAVATED [None]
  - CONFUSIONAL STATE [None]
  - DIZZINESS [None]
  - MIGRAINE [None]
  - PERONEAL NERVE PALSY [None]
  - SOMNOLENCE [None]
  - VISION BLURRED [None]
